FAERS Safety Report 8764649 (Version 1)
Quarter: 2012Q4

REPORT INFORMATION
  Report Type: Report from Study
  Country: US (occurrence: US)
  Receive Date: 20120831
  Receipt Date: 20120831
  Transmission Date: 20130627
  Serious: Yes (Other)
  Sender: FDA-Public Use
  Company Number: US-TEVA-356594USA

PATIENT
  Age: 8 Year
  Sex: Male
  Weight: 22.3 kg

DRUGS (7)
  1. TRISENOX [Suspect]
     Indication: ACUTE PROMYELOCYTIC LEUKAEMIA
     Dosage: 25 Milligram Daily;
     Route: 048
     Dates: start: 20110921
  2. CYTARABINE [Suspect]
     Indication: ACUTE PROMYELOCYTIC LEUKAEMIA
     Dosage: day 1 cycle 1
     Route: 037
     Dates: start: 20110921
  3. IDARUBICIN [Suspect]
     Indication: ACUTE PROMYELOCYTIC LEUKAEMIA
  4. MERCAPTOPURINE [Suspect]
     Indication: ACUTE PROMYELOCYTIC LEUKAEMIA
     Dosage: 11100 Milligram Daily; 50 mg/m2/dose; days 1-84
     Route: 048
     Dates: start: 20110921
  5. METHOTREXATE [Suspect]
     Indication: ACUTE PROMYELOCYTIC LEUKAEMIA
     Dosage: 25 mg/m2/dose; days 1,8,15,22,29,36,43,50,57,64,71,78
     Route: 048
     Dates: start: 20110921
  6. MITOXANTRONE [Suspect]
     Indication: ACUTE PROMYELOCYTIC LEUKAEMIA
  7. TRETINOIN [Suspect]
     Indication: ACUTE PROMYELOCYTIC LEUKAEMIA
     Dosage: 560 Milligram Daily; 12.5 mg/m2/dose; days 1-14
     Route: 048
     Dates: start: 20110921

REACTIONS (1)
  - Osteonecrosis [Recovering/Resolving]
